FAERS Safety Report 23188953 (Version 1)
Quarter: 2023Q4

REPORT INFORMATION
  Report Type: Spontaneous
  Country: CN (occurrence: CN)
  Receive Date: 20231115
  Receipt Date: 20231115
  Transmission Date: 20240110
  Serious: Yes (Other)
  Sender: FDA-Public Use
  Company Number: CN-ELI_LILLY_AND_COMPANY-CN202311002895

PATIENT
  Age: 35 Year
  Sex: Male
  Weight: 82 kg

DRUGS (2)
  1. TRULICITY [Suspect]
     Active Substance: DULAGLUTIDE
     Indication: Type 2 diabetes mellitus
     Dosage: UNK UNK, WEEKLY (1/W)
     Route: 058
     Dates: start: 20231021, end: 20231023
  2. METFORMIN HYDROCHLORIDE [Concomitant]
     Active Substance: METFORMIN HYDROCHLORIDE
     Indication: Type 2 diabetes mellitus
     Dosage: UNK, BID
     Route: 048
     Dates: start: 20231020, end: 20231023

REACTIONS (3)
  - Faeces discoloured [Recovering/Resolving]
  - Traumatic heart injury [Recovering/Resolving]
  - Vomiting [Recovering/Resolving]

NARRATIVE: CASE EVENT DATE: 20231023
